FAERS Safety Report 24662677 (Version 1)
Quarter: 2024Q4

REPORT INFORMATION
  Report Type: Spontaneous
  Country: DE (occurrence: DE)
  Receive Date: 20241126
  Receipt Date: 20241126
  Transmission Date: 20250115
  Serious: Yes (Other)
  Sender: ALEXION PHARMACEUTICALS
  Company Number: DE-ASTRAZENECA-202411EEA014858DE

PATIENT

DRUGS (2)
  1. CALQUENCE [Suspect]
     Active Substance: ACALABRUTINIB
     Dosage: UNK
  2. OBINUTUZUMAB [Suspect]
     Active Substance: OBINUTUZUMAB
     Dosage: UNK
     Route: 065

REACTIONS (3)
  - Diarrhoea haemorrhagic [Unknown]
  - Mucous stools [Unknown]
  - Diarrhoea [Recovering/Resolving]
